FAERS Safety Report 5939397-X (Version None)
Quarter: 2008Q4

REPORT INFORMATION
  Report Type: 
  Country: None (occurrence: None)
  Receive Date: 20081103
  Receipt Date: 20081028
  Transmission Date: 20090506
  Serious: Yes (Other)
  Sender: FDA-Public Use
  Company Number: US-GENENTECH-267139

PATIENT
  Age: 48 Year
  Sex: Female

DRUGS (1)
  1. NUTROPIN [Suspect]
     Indication: DRUG USE FOR UNKNOWN INDICATION
     Dosage: .02 MG, QD
     Dates: end: 20071001

REACTIONS (1)
  - BREAST CANCER [None]
